FAERS Safety Report 18700432 (Version 1)
Quarter: 2021Q1

REPORT INFORMATION
  Report Type: Spontaneous
  Country: US (occurrence: US)
  Receive Date: 20210104
  Receipt Date: 20210104
  Transmission Date: 20210419
  Serious: Yes (Life-Threatening, Hospitalization)
  Sender: FDA-Public Use
  Company Number: None

PATIENT
  Age: 62 Year
  Sex: Male
  Weight: 114.75 kg

DRUGS (8)
  1. ZYLOPRIM [Concomitant]
     Active Substance: ALLOPURINOL
  2. BUDESONIDE (RHINOORT AQ) [Concomitant]
  3. GABAPENTIN. [Suspect]
     Active Substance: GABAPENTIN
     Indication: NEURALGIA
     Dosage: ?          QUANTITY:2 CAPSULE(S);?
     Route: 048
  4. GABAPENTIN. [Suspect]
     Active Substance: GABAPENTIN
     Indication: RESTLESS LEGS SYNDROME
     Dosage: ?          QUANTITY:2 CAPSULE(S);?
     Route: 048
  5. NEURONTIN [Concomitant]
     Active Substance: GABAPENTIN
  6. PROPRANOL (INDERAL) [Concomitant]
  7. ZOLOFT [Concomitant]
     Active Substance: SERTRALINE HYDROCHLORIDE
  8. TAMSULOSIN HCL (FLOMAX) [Concomitant]

REACTIONS (3)
  - Pulmonary embolism [None]
  - Dyspnoea [None]
  - Troponin increased [None]

NARRATIVE: CASE EVENT DATE: 20201129
